FAERS Safety Report 12204436 (Version 1)
Quarter: 2016Q1

REPORT INFORMATION
  Report Type: Report from Study
  Country: CN (occurrence: CN)
  Receive Date: 20160323
  Receipt Date: 20160323
  Transmission Date: 20160526
  Serious: Yes (Hospitalization)
  Sender: FDA-Public Use
  Company Number: CN-ASTELLAS-2016US010419

PATIENT
  Age: 67 Year
  Sex: Female

DRUGS (1)
  1. ERLOTINIB [Suspect]
     Active Substance: ERLOTINIB
     Indication: NON-SMALL CELL LUNG CANCER
     Route: 048
     Dates: start: 20140519

REACTIONS (3)
  - Fracture [Unknown]
  - Pain in extremity [Unknown]
  - Pain in extremity [Unknown]

NARRATIVE: CASE EVENT DATE: 201510
